FAERS Safety Report 13252320 (Version 2)
Quarter: 2017Q1

REPORT INFORMATION
  Report Type: Report from Study
  Country: FR (occurrence: FR)
  Receive Date: 20170220
  Receipt Date: 20170222
  Transmission Date: 20170428
  Serious: Yes (Death, Hospitalization, Other)
  Sender: FDA-Public Use
  Company Number: FR-BRISTOL-MYERS SQUIBB COMPANY-BMS-2015-005653

PATIENT
  Age: 74 Year
  Sex: Female
  Weight: 70 kg

DRUGS (18)
  1. OXYNORM [Concomitant]
     Active Substance: OXYCODONE HYDROCHLORIDE
     Indication: PAIN
     Dosage: 5 MG, BID
     Route: 065
     Dates: start: 20150827, end: 20151108
  2. LOVENOX [Concomitant]
     Active Substance: ENOXAPARIN SODIUM
     Indication: PRODUCT USED FOR UNKNOWN INDICATION
     Dosage: 1 DF, QD
     Route: 065
     Dates: end: 20151108
  3. DUPHALAC [Concomitant]
     Active Substance: LACTULOSE
     Indication: ASCITES
     Dosage: 10 MG, BID
     Route: 065
     Dates: start: 2015, end: 20151108
  4. LASILIX                            /00032601/ [Concomitant]
     Active Substance: FUROSEMIDE
     Indication: OEDEMA
     Dosage: 60 MG, QD
     Route: 065
     Dates: start: 20150710, end: 20151108
  5. XANAX [Concomitant]
     Active Substance: ALPRAZOLAM
     Indication: ANXIETY
     Dosage: 0.25 MG, UNK
     Route: 065
     Dates: start: 2015, end: 20151108
  6. PECFENT [Concomitant]
     Active Substance: FENTANYL CITRATE
     Indication: BACK PAIN
     Dosage: 100 ?G, UNK
     Route: 065
     Dates: start: 20150604, end: 20151108
  7. OXYNORM [Concomitant]
     Active Substance: OXYCODONE HYDROCHLORIDE
     Indication: PRODUCT USED FOR UNKNOWN INDICATION
     Dosage: 10 MG, QD
     Route: 065
     Dates: start: 20150828, end: 20151108
  8. EUPANTOL [Concomitant]
     Active Substance: PANTOPRAZOLE SODIUM
     Indication: GASTROOESOPHAGEAL REFLUX DISEASE
     Dosage: 40 MG, QD
     Route: 065
     Dates: start: 2015, end: 20151108
  9. DACLATASVIR DIHYDROCHLORIDE [Suspect]
     Active Substance: DACLATASVIR DIHYDROCHLORIDE
     Indication: HEPATITIS C
     Dosage: 60 MG, QD
     Route: 048
     Dates: start: 20141027, end: 20150119
  10. DIFFU K [Concomitant]
     Active Substance: POTASSIUM CHLORIDE
     Indication: HYPOKALAEMIA
     Dosage: UNK
     Route: 065
     Dates: start: 20150603, end: 20151108
  11. DUROGESIC [Concomitant]
     Active Substance: FENTANYL
     Indication: BACK PAIN
     Dosage: 25 ?, UNK
     Route: 065
     Dates: start: 20150604, end: 20151108
  12. DUROGESIC [Concomitant]
     Active Substance: FENTANYL
     Indication: MUSCULOSKELETAL PAIN
     Route: 065
  13. CORTANCYL [Concomitant]
     Active Substance: PREDNISONE
     Indication: PRODUCT USED FOR UNKNOWN INDICATION
     Dosage: 40 MG, QD
     Route: 065
     Dates: start: 20150922, end: 20151108
  14. IMODIUM [Concomitant]
     Active Substance: LOPERAMIDE HYDROCHLORIDE
     Indication: DIARRHOEA
     Dosage: 2 MG, UNK
     Route: 065
     Dates: start: 2015, end: 20151108
  15. SOFOSBUVIR [Suspect]
     Active Substance: SOFOSBUVIR
     Indication: HEPATITIS C
     Dosage: 400 MG, QD
     Route: 048
     Dates: start: 20141027, end: 20150119
  16. MAG 2                              /00454301/ [Concomitant]
     Active Substance: MAGNESIUM CARBONATE
     Indication: HYPOKALAEMIA
     Dosage: 100 MG, BID
     Route: 065
     Dates: start: 20150603, end: 20151108
  17. PECFENT [Concomitant]
     Active Substance: FENTANYL CITRATE
     Indication: MUSCULOSKELETAL PAIN
     Route: 065
  18. LASILIX                            /00032601/ [Concomitant]
     Active Substance: FUROSEMIDE
     Indication: ASCITES
     Route: 065

REACTIONS (6)
  - Dyspnoea [Fatal]
  - Hepatocellular carcinoma [Fatal]
  - Hepatectomy [Unknown]
  - General physical health deterioration [Fatal]
  - Pleural effusion [Unknown]
  - Nephrectomy [Unknown]

NARRATIVE: CASE EVENT DATE: 20141208
